FAERS Safety Report 6544305-7 (Version None)
Quarter: 2010Q1

REPORT INFORMATION
  Report Type: 
  Country: None (occurrence: None)
  Receive Date: 20100120
  Receipt Date: 20100120
  Transmission Date: 20100710
  Serious: Yes (Hospitalization, Disabling, Other)
  Sender: FDA-Public Use
  Company Number: None

PATIENT
  Sex: Female
  Weight: 55.7924 kg

DRUGS (2)
  1. FOSAMAX [Suspect]
     Indication: OSTEOPOROSIS
     Dosage: DAILY PO WHEN DRUG 1ST AVAILABLE
     Route: 048
  2. FOSAMAX [Suspect]
     Dosage: SEVERAL YEARS

REACTIONS (1)
  - ATRIAL FIBRILLATION [None]
